FAERS Safety Report 21384428 (Version 2)
Quarter: 2022Q3

REPORT INFORMATION
  Report Type: Other
  Country: CA (occurrence: None)
  Receive Date: 20220928
  Receipt Date: 20220930
  Transmission Date: 20221027
  Serious: Yes (Other)
  Sender: FDA-Public Use
  Company Number: CA-ROCHE-3184966

PATIENT
  Age: 35 Year
  Sex: Female

DRUGS (1)
  1. RITUXIMAB [Suspect]
     Active Substance: RITUXIMAB
     Indication: Transplant rejection
     Route: 065

REACTIONS (3)
  - Complications of transplanted lung [Unknown]
  - Drug effective for unapproved indication [Unknown]
  - Off label use [Unknown]
